FAERS Safety Report 8378051-4 (Version None)
Quarter: 2012Q2

REPORT INFORMATION
  Report Type: 
  Country: None (occurrence: None)
  Receive Date: 20120522
  Receipt Date: 20120509
  Transmission Date: 20120825
  Serious: Yes (Other)
  Sender: FDA-Public Use
  Company Number: US-ROCHE-1022764

PATIENT
  Sex: Male
  Weight: 101.02 kg

DRUGS (22)
  1. DUONEB [Concomitant]
     Dosage: 0.5MG -3 MG/3 ML
  2. LASIX [Concomitant]
     Route: 048
  3. SINGULAIR [Concomitant]
     Route: 048
  4. XOLAIR [Suspect]
     Indication: ASTHMA
     Route: 058
     Dates: start: 20100101
  5. CETIRIZINE HYDROCHLORIDE/PSEUDOEPHEDRINE HYDROCHLORIDE [Concomitant]
     Dosage: 5-120 MG
  6. IBUPROFEN [Concomitant]
  7. MAXAIR [Concomitant]
     Dosage: 200 MCG/INHALATION
  8. NEXIUM [Concomitant]
     Route: 048
  9. PATANOL [Concomitant]
     Dosage: 0.1 % DROP
  10. PREDNISONE [Concomitant]
  11. ALBUTEROL SULFATE [Concomitant]
     Dosage: 0.083 % NEBU SOLN
  12. NASONEX [Concomitant]
     Dosage: 50 MCG/ACTUATION SPRAY
  13. ASTELIN [Concomitant]
  14. NYSTATIN [Concomitant]
     Dosage: 100000 UNIT/ ML, 5 ML BY MOUTH
     Route: 048
  15. PULMICORT FLEXHALER [Concomitant]
  16. XANAX [Concomitant]
     Route: 048
  17. XOLAIR [Suspect]
     Route: 058
  18. ADVAIR DISKUS 100/50 [Concomitant]
     Dosage: 500-50 MCG/DOSE WITH DEVICE, 1 PUFF
  19. IPRATROPIUM BROMIDE [Concomitant]
     Dosage: 0.02 % SOLUTION
  20. EPIPEN [Concomitant]
     Dosage: 0.3 MG/0.3 ML
     Route: 030
  21. GLIMEPIRIDE [Concomitant]
     Route: 048
  22. METFORMIN HCL [Concomitant]
     Route: 048

REACTIONS (6)
  - PYREXIA [None]
  - INFLUENZA LIKE ILLNESS [None]
  - CHILLS [None]
  - MALAISE [None]
  - ASTHMA [None]
  - PAIN [None]
